FAERS Safety Report 4674098-X (Version None)
Quarter: 2005Q2

REPORT INFORMATION
  Report Type: 
  Country: None (occurrence: None)
  Receive Date: 20050524
  Receipt Date: 20050524
  Transmission Date: 20051028
  Serious: Yes (Disabling)
  Sender: FDA-Public Use
  Company Number: None

PATIENT
  Age: 34 Year
  Sex: Female
  Weight: 66.2252 kg

DRUGS (2)
  1. REMICADE [Suspect]
     Indication: CROHN'S DISEASE
     Dates: start: 20030428, end: 20030428
  2. REMICADE [Suspect]
     Indication: CROHN'S DISEASE
     Dates: start: 20030512, end: 20030512

REACTIONS (8)
  - BLISTER [None]
  - IMPAIRED WORK ABILITY [None]
  - INFUSION RELATED REACTION [None]
  - MALAISE [None]
  - MEDICATION ERROR [None]
  - NAIL DISORDER [None]
  - RASH [None]
  - SKIN EXFOLIATION [None]
